FAERS Safety Report 25527175 (Version 2)
Quarter: 2025Q3

REPORT INFORMATION
  Report Type: Spontaneous
  Country: EU (occurrence: EU)
  Receive Date: 20250708
  Receipt Date: 20250724
  Transmission Date: 20251021
  Serious: Yes (Hospitalization, Other)
  Sender: CELLTRION
  Company Number: None

PATIENT

DRUGS (2)
  1. RITUXIMAB [Suspect]
     Active Substance: RITUXIMAB
     Indication: Vasculitis
     Route: 042
     Dates: start: 20241122, end: 20241206
  2. CLAIRYG [Suspect]
     Active Substance: HUMAN IMMUNOGLOBULIN G
     Indication: Product used for unknown indication
     Route: 042
     Dates: start: 20250211

REACTIONS (1)
  - Agranulocytosis [Not Recovered/Not Resolved]

NARRATIVE: CASE EVENT DATE: 20250218
